FAERS Safety Report 7033010-9 (Version None)
Quarter: 2010Q4

REPORT INFORMATION
  Report Type: 
  Country: None (occurrence: None)
  Receive Date: 20101007
  Receipt Date: 20100928
  Transmission Date: 20110411
  Serious: Yes (Other)
  Sender: FDA-Public Use
  Company Number: US-PFIZER INC-2010123922

PATIENT
  Sex: Male

DRUGS (6)
  1. GEODON [Suspect]
     Indication: SCHIZOPHRENIA
     Dosage: 20 MG, 2X/DAY
     Route: 048
     Dates: start: 20020101
  2. GEODON [Suspect]
     Dosage: 40 MG, 2X/DAY
     Route: 048
  3. GEODON [Suspect]
     Dosage: 60 MG, 2X/DAY
     Route: 048
  4. GEODON [Suspect]
     Dosage: 80 MG, 2X/DAY
     Route: 048
  5. GEODON [Suspect]
     Dosage: 80 MG IN THE MORNING;120MG IN THE EVENING
     Route: 048
     Dates: start: 20100901
  6. ZYPREXA [Concomitant]
     Dosage: UNK

REACTIONS (9)
  - AGGRESSION [None]
  - AGITATION [None]
  - DYSKINESIA [None]
  - EYE DISORDER [None]
  - FATIGUE [None]
  - PRURITUS [None]
  - RASH [None]
  - RESTLESSNESS [None]
  - TREMOR [None]
